FAERS Safety Report 11905677 (Version 2)
Quarter: 2016Q3

REPORT INFORMATION
  Report Type: Spontaneous
  Country: FR (occurrence: FR)
  Receive Date: 20160110
  Receipt Date: 20160713
  Transmission Date: 20161109
  Serious: Yes (Hospitalization, Other)
  Sender: FDA-Public Use
  Company Number: FR-TEVA-624021ISR

PATIENT
  Age: 41 Year
  Sex: Female

DRUGS (7)
  1. LEVOTHYROX [Concomitant]
     Active Substance: LEVOTHYROXINE
  2. LAROXYL [Concomitant]
     Active Substance: AMITRIPTYLINE
     Indication: HEADACHE
  3. ELISOR [Concomitant]
     Active Substance: PRAVASTATIN SODIUM
  4. ANDROCUR 50 MG [Suspect]
     Active Substance: CYPROTERONE ACETATE
     Indication: HIRSUTISM
     Dosage: 1 DOSAGE FORMS DAILY;
     Route: 048
     Dates: start: 2004, end: 2010
  5. MEFORMINE [Concomitant]
  6. ESTREVA [Suspect]
     Active Substance: ESTRADIOL
     Indication: HIRSUTISM
     Dosage: 1 DOSAGE FORMS DAILY;
     Route: 048
     Dates: start: 2004, end: 2010
  7. DOSTINEX [Concomitant]
     Active Substance: CABERGOLINE
     Indication: HYPERPROLACTINAEMIA

REACTIONS (1)
  - Meningioma [Recovered/Resolved with Sequelae]

NARRATIVE: CASE EVENT DATE: 20100226
